FAERS Safety Report 7719741-3 (Version None)
Quarter: 2011Q3

REPORT INFORMATION
  Report Type: 
  Country: None (occurrence: None)
  Receive Date: 20110831
  Receipt Date: 20110824
  Transmission Date: 20111222
  Serious: Yes (Hospitalization)
  Sender: FDA-Public Use
  Company Number: BE-BIOGENIDEC-2010BI041676

PATIENT
  Age: 30 Year
  Sex: Male

DRUGS (2)
  1. CLONAZEPAM [Concomitant]
  2. TYSABRI [Suspect]
     Indication: MULTIPLE SCLEROSIS
     Route: 042
     Dates: start: 20090722, end: 20101104

REACTIONS (2)
  - MULTIPLE SCLEROSIS RELAPSE [None]
  - SEMINOMA [None]
